FAERS Safety Report 9768863 (Version 1)
Quarter: 2013Q3

REPORT INFORMATION
  Report Type: Spontaneous
  Country: US (occurrence: None)
  Receive Date: 20130828
  Receipt Date: 20130828
  Transmission Date: 20140515
  Serious: Yes (Other)
  Sender: FDA-Public Use
  Company Number: 163-21880-13070372

PATIENT
  Age: 66 Year
  Sex: Male

DRUGS (7)
  1. REVLIMID (LENALIDOMIDE) (CAPSULES) [Suspect]
     Indication: MANTLE CELL LYMPHOMA
     Route: 048
     Dates: start: 20110629
  2. OFATUMUMAB [Suspect]
     Indication: MANTLE CELL LYMPHOMA
     Dosage: 8 IN 8 WK.
     Route: 042
     Dates: start: 20110629
  3. ERYTHROMYCIN (ERYTHROMYCIN) (OINTMENT) [Concomitant]
  4. LISINOPRIL (LISINOPRIL) (TABLETS) [Concomitant]
  5. ATORVASTATIN CALCIUM (ATORVASTATIN CALCIUM) [Concomitant]
  6. ASPIRIN (ACETYLSALICYLIC ACID) [Concomitant]
  7. MULTIPLE VITAMINS (MULTIPLE VITAMINS) [Concomitant]

REACTIONS (2)
  - Squamous cell carcinoma of skin [None]
  - Basal cell carcinoma [None]
